FAERS Safety Report 7417438-0 (Version None)
Quarter: 2011Q2

REPORT INFORMATION
  Report Type: 
  Country: None (occurrence: None)
  Receive Date: 20110412
  Receipt Date: 20110412
  Transmission Date: 20111010
  Serious: No
  Sender: FDA-Public Use
  Company Number: None

PATIENT
  Sex: Female
  Weight: 95.2554 kg

DRUGS (1)
  1. SULFATRIM-DS [Suspect]
     Indication: BLADDER DISORDER
     Dosage: 2 DAILY W/WATER
     Dates: start: 20110316, end: 20110318

REACTIONS (6)
  - DIARRHOEA HAEMORRHAGIC [None]
  - IRRITABILITY [None]
  - STOMATITIS [None]
  - HAEMATOCHEZIA [None]
  - GENITAL RASH [None]
  - OEDEMA PERIPHERAL [None]
